FAERS Safety Report 4788075-1 (Version None)
Quarter: 2005Q4

REPORT INFORMATION
  Report Type: 
  Country: None (occurrence: None)
  Receive Date: 20051003
  Receipt Date: 20050916
  Transmission Date: 20060501
  Serious: Yes (Life-Threatening)
  Sender: FDA-Public Use
  Company Number: 12380

PATIENT
  Age: 48 Year
  Sex: Male

DRUGS (1)
  1. FLUCONAZOLE [Suspect]
     Indication: PNEUMONIA FUNGAL

REACTIONS (4)
  - BLOOD CALCIUM DECREASED [None]
  - DEPRESSED LEVEL OF CONSCIOUSNESS [None]
  - LONG QT SYNDROME [None]
  - TORSADE DE POINTES [None]
